FAERS Safety Report 24569202 (Version 1)
Quarter: 2024Q4

REPORT INFORMATION
  Report Type: Spontaneous
  Country: US (occurrence: None)
  Receive Date: 20241030
  Receipt Date: 20241030
  Transmission Date: 20250114
  Serious: Yes (Disabling, Other)
  Sender: Public
  Company Number: None

PATIENT
  Age: 45 Year
  Sex: Male
  Weight: 114.75 kg

DRUGS (6)
  1. PREGABALIN [Suspect]
     Active Substance: PREGABALIN
     Indication: Arthralgia
     Dosage: 1 CAPSULE TWICE A DAY ORAL
     Route: 048
     Dates: start: 20240920, end: 20241015
  2. PREGABALIN [Suspect]
     Active Substance: PREGABALIN
     Indication: Myofascial pain syndrome
  3. EFFEXOR [Concomitant]
     Active Substance: VENLAFAXINE HYDROCHLORIDE
  4. PROTONIX [Concomitant]
     Active Substance: PANTOPRAZOLE SODIUM
  5. ROBAXIN [Concomitant]
     Active Substance: METHOCARBAMOL
  6. ATIVAN [Concomitant]
     Active Substance: LORAZEPAM

REACTIONS (4)
  - Muscle spasms [None]
  - Dyskinesia [None]
  - Seizure [None]
  - Therapy cessation [None]

NARRATIVE: CASE EVENT DATE: 20241015
